FAERS Safety Report 13288712 (Version 1)
Quarter: 2017Q1

REPORT INFORMATION
  Report Type: Spontaneous
  Country: CO (occurrence: CO)
  Receive Date: 20170302
  Receipt Date: 20170302
  Transmission Date: 20170428
  Serious: Yes (Other)
  Sender: FDA-Public Use
  Company Number: CO-BIOMARINAP-CO-2017-113006

PATIENT
  Age: 19 Year
  Sex: Female

DRUGS (1)
  1. VIMIZIM [Suspect]
     Active Substance: ELOSULFASE ALFA
     Indication: MUCOPOLYSACCHARIDOSIS IV
     Route: 042

REACTIONS (2)
  - Nasal congestion [Unknown]
  - Pulmonary congestion [Unknown]

NARRATIVE: CASE EVENT DATE: 20170224
